FAERS Safety Report 23648993 (Version 1)
Quarter: 2024Q1

REPORT INFORMATION
  Report Type: Spontaneous
  Country: CN (occurrence: None)
  Receive Date: 20240319
  Receipt Date: 20240319
  Transmission Date: 20240410
  Serious: Yes (Other)
  Sender: FDA-Public Use
  Company Number: 2024A063430

PATIENT
  Age: 22185 Day
  Sex: Female
  Weight: 60 kg

DRUGS (1)
  1. DAPAGLIFLOZIN [Suspect]
     Active Substance: DAPAGLIFLOZIN
     Indication: Type 2 diabetes mellitus
     Route: 048
     Dates: start: 20220225, end: 20240228

REACTIONS (2)
  - Ketosis [Recovering/Resolving]
  - Vaginal infection [Recovering/Resolving]

NARRATIVE: CASE EVENT DATE: 20240228
